FAERS Safety Report 8556778-9 (Version None)
Quarter: 2012Q3

REPORT INFORMATION
  Report Type: 
  Country: None (occurrence: None)
  Receive Date: 20120801
  Receipt Date: 20120724
  Transmission Date: 20120928
  Serious: Yes (Other)
  Sender: FDA-Public Use
  Company Number: NL-B.I. PHARMACEUTICALS,INC./RIDGEFIELD-2012-NL-00302NL

PATIENT
  Sex: Male
  Weight: 69 kg

DRUGS (2)
  1. FENPROCOUMON [Concomitant]
     Dosage: DOSAGE ACCORDING TO SCHEDULE INTENSIVE CARE FOR THROMBOTIC PAT.
     Dates: start: 20120705
  2. PRADAXA [Suspect]
     Indication: ATRIAL FIBRILLATION
     Dosage: 150 MG
     Dates: start: 20120524, end: 20120705

REACTIONS (9)
  - DYSPHAGIA [None]
  - MEDICATION ERROR [None]
  - WEIGHT DECREASED [None]
  - TREATMENT NONCOMPLIANCE [None]
  - APATHY [None]
  - VOMITING [None]
  - INCORRECT DOSE ADMINISTERED [None]
  - GASTRIC DISORDER [None]
  - NAUSEA [None]
